FAERS Safety Report 10046278 (Version 1)
Quarter: 2014Q1

REPORT INFORMATION
  Report Type: Spontaneous
  Country: US (occurrence: US)
  Receive Date: 20140331
  Receipt Date: 20140331
  Transmission Date: 20141002
  Serious: No
  Sender: FDA-Public Use
  Company Number: US-BIOGENIDEC-2014BI026751

PATIENT
  Age: 55 Year
  Sex: Female

DRUGS (15)
  1. TECFIDERA [Suspect]
     Indication: MULTIPLE SCLEROSIS
     Route: 048
     Dates: start: 20130524
  2. ALBUTEROL SULFATE [Concomitant]
  3. ASPIRIN [Concomitant]
  4. CARVEDILOL [Concomitant]
  5. DIAZEPAM [Concomitant]
  6. FLEXERIL [Concomitant]
  7. LEXAPRO [Concomitant]
  8. NITROGLYCERIN [Concomitant]
  9. NORVASC [Concomitant]
  10. PERCOCET [Concomitant]
  11. PRILOSEC [Concomitant]
  12. PROMETHAZINE HCI [Concomitant]
  13. PYRIDIUM [Concomitant]
  14. SUCRALFATE [Concomitant]
  15. VESICARE [Concomitant]

REACTIONS (5)
  - Autonomic nervous system imbalance [Not Recovered/Not Resolved]
  - Upper respiratory tract infection [Recovered/Resolved]
  - Vision blurred [Not Recovered/Not Resolved]
  - Blood pressure fluctuation [Not Recovered/Not Resolved]
  - Flushing [Not Recovered/Not Resolved]
